FAERS Safety Report 7951447-8 (Version None)
Quarter: 2011Q4

REPORT INFORMATION
  Report Type: 
  Country: None (occurrence: None)
  Receive Date: 20111201
  Receipt Date: 20111122
  Transmission Date: 20120403
  Serious: Yes (Hospitalization, Other)
  Sender: FDA-Public Use
  Company Number: US-US-EMD SERONO, INC.-7074259

PATIENT
  Sex: Male

DRUGS (1)
  1. REBIF [Suspect]
     Indication: MULTIPLE SCLEROSIS
     Dates: start: 20101022, end: 20110801

REACTIONS (5)
  - MYOCARDIAL CALCIFICATION [None]
  - BRONCHITIS [None]
  - PULMONARY FIBROSIS [None]
  - PNEUMONIA [None]
  - CHILLS [None]
